FAERS Safety Report 5647889-6 (Version None)
Quarter: 2008Q1

REPORT INFORMATION
  Report Type: 
  Country: None (occurrence: None)
  Receive Date: 20080303
  Receipt Date: 20080220
  Transmission Date: 20080703
  Serious: Yes (Other)
  Sender: FDA-Public Use
  Company Number: US-PFIZER INC-2008017384

PATIENT
  Sex: Male
  Weight: 72.7 kg

DRUGS (4)
  1. CHANTIX [Suspect]
     Indication: SMOKING CESSATION THERAPY
     Route: 048
  2. ALL OTHER THERAPEUTIC PRODUCTS [Concomitant]
  3. ATRIPLA [Concomitant]
  4. VALSARTAN [Concomitant]

REACTIONS (2)
  - ABDOMINAL PAIN [None]
  - GAIT DISTURBANCE [None]
